FAERS Safety Report 7118727-X (Version None)
Quarter: 2010Q4

REPORT INFORMATION
  Report Type: 
  Country: None (occurrence: None)
  Receive Date: 20101123
  Receipt Date: 20101118
  Transmission Date: 20110411
  Serious: Yes (Other)
  Sender: FDA-Public Use
  Company Number: US-PFIZER INC-2010117478

PATIENT
  Sex: Male

DRUGS (8)
  1. CHANTIX [Suspect]
     Indication: SMOKING CESSATION THERAPY
     Dosage: CHANTIX STARTER MONTH PACK AND CONTINUING MONTH PACKS
     Dates: start: 20080903, end: 20081108
  2. SKELAXIN [Concomitant]
     Indication: BACK PAIN
     Dosage: UNK
     Dates: start: 20070101, end: 20090101
  3. SKELAXIN [Concomitant]
     Indication: NECK PAIN
  4. HYDROCODONE [Concomitant]
     Indication: BACK PAIN
     Dosage: UNK
     Dates: start: 20070101, end: 20090101
  5. HYDROCODONE [Concomitant]
     Indication: NECK PAIN
  6. ATENOLOL [Concomitant]
     Indication: HYPERTENSION
     Dosage: UNK
     Dates: start: 20000101
  7. ATENOLOL [Concomitant]
     Indication: ANGINA PECTORIS
  8. ACETYLSALICYLIC ACID [Concomitant]
     Indication: CORONARY ARTERY DISEASE
     Dosage: UNK
     Dates: start: 20000101

REACTIONS (7)
  - AGGRESSION [None]
  - ANXIETY [None]
  - DEPRESSION [None]
  - HALLUCINATION, VISUAL [None]
  - INSOMNIA [None]
  - NIGHTMARE [None]
  - SUICIDAL IDEATION [None]
